FAERS Safety Report 18383113 (Version 4)
Quarter: 2021Q2

REPORT INFORMATION
  Report Type: Report from Study
  Country: CO (occurrence: CO)
  Receive Date: 20201014
  Receipt Date: 20210531
  Transmission Date: 20210717
  Serious: Yes (Other)
  Sender: FDA-Public Use
  Company Number: CO-JNJFOC-A-CH2020-206046

PATIENT
  Age: 68 Year
  Sex: Female
  Weight: 85 kg

DRUGS (6)
  1. METOPROLOL. [Concomitant]
     Active Substance: METOPROLOL
  2. THYROXIN [Concomitant]
     Active Substance: LEVOTHYROXINE
  3. PANTOPRAZOLE [Concomitant]
     Active Substance: PANTOPRAZOLE
  4. OPSUMIT [Suspect]
     Active Substance: MACITENTAN
     Indication: PULMONARY ARTERIAL HYPERTENSION
     Dosage: 10 MG, QD
     Route: 048
     Dates: start: 20200520
  5. FUROSEMIDE. [Concomitant]
     Active Substance: FUROSEMIDE
  6. ENALAPRIL [Concomitant]
     Active Substance: ENALAPRIL

REACTIONS (10)
  - Liver disorder [Recovering/Resolving]
  - Pain [Recovering/Resolving]
  - Pulmonary fibrosis [Recovered/Resolved]
  - Malaise [Not Recovered/Not Resolved]
  - Hepatitis [Not Recovered/Not Resolved]
  - Abdominal pain upper [Not Recovered/Not Resolved]
  - Back pain [Not Recovered/Not Resolved]
  - Product quality issue [Unknown]
  - Migraine [Recovering/Resolving]
  - Abdominal distension [Recovering/Resolving]

NARRATIVE: CASE EVENT DATE: 2020
